FAERS Safety Report 17241303 (Version 1)
Quarter: 2019Q4

REPORT INFORMATION
  Report Type: Spontaneous
  Country: US (occurrence: US)
  Receive Date: 20191212
  Receipt Date: 20191212
  Transmission Date: 20200122
  Serious: No
  Sender: FDA-Public Use
  Company Number: None

PATIENT
  Sex: Male

DRUGS (1)
  1. AVONEX PEN [Suspect]
     Active Substance: INTERFERON BETA-1A
     Indication: MULTIPLE SCLEROSIS
     Route: 058
     Dates: start: 20191209

REACTIONS (8)
  - Injection site bruising [None]
  - Hypoaesthesia [None]
  - Depression [None]
  - Paraesthesia [None]
  - Decreased appetite [None]
  - Injection site pain [None]
  - Constipation [None]
  - Insomnia [None]
